FAERS Safety Report 10888727 (Version 4)
Quarter: 2016Q1

REPORT INFORMATION
  Report Type: Spontaneous
  Country: US (occurrence: US)
  Receive Date: 20150305
  Receipt Date: 20160217
  Transmission Date: 20160525
  Serious: Yes (Congenital Anomaly, Other)
  Sender: FDA-Public Use
  Company Number: US-APOTEX-2015AP007111

PATIENT
  Sex: Male

DRUGS (2)
  1. PAXIL [Suspect]
     Active Substance: PAROXETINE HYDROCHLORIDE
     Indication: DEPRESSION
     Dosage: 20 MG, UNK
     Route: 064
  2. PAXIL [Suspect]
     Active Substance: PAROXETINE HYDROCHLORIDE
     Dosage: 12 MG, UNK
     Route: 064

REACTIONS (11)
  - Congenital aortic valve stenosis [Unknown]
  - Cardiac murmur [Unknown]
  - Micrognathia [Unknown]
  - Heart disease congenital [Unknown]
  - Pierre Robin syndrome [Unknown]
  - Aortic occlusion [Unknown]
  - Speech disorder [Unknown]
  - Foetal exposure during pregnancy [Unknown]
  - Cleft palate [Unknown]
  - Cytogenetic abnormality [Unknown]
  - Velopharyngeal incompetence [Unknown]
